FAERS Safety Report 6570563-9 (Version None)
Quarter: 2010Q1

REPORT INFORMATION
  Report Type: 
  Country: None (occurrence: None)
  Receive Date: 20100204
  Receipt Date: 20100127
  Transmission Date: 20100710
  Serious: Yes (Hospitalization)
  Sender: FDA-Public Use
  Company Number: GXKR2010GB00645

PATIENT
  Age: 57 Year
  Sex: Female

DRUGS (4)
  1. OXALIPLATIN [Suspect]
     Dosage: UNK
     Route: 065
     Dates: start: 20090901
  2. FLUOROURACIL [Suspect]
     Dosage: UNK
     Route: 065
     Dates: start: 20090901
  3. ERBITUX [Suspect]
     Dosage: UNK
     Route: 041
     Dates: start: 20090901
  4. FOLINIC ACID [Suspect]
     Dosage: UNK
     Route: 065
     Dates: start: 20090901

REACTIONS (3)
  - BLOOD CREATININE INCREASED [None]
  - DIARRHOEA [None]
  - NAUSEA [None]
